FAERS Safety Report 9880007 (Version 1)
Quarter: 2014Q1

REPORT INFORMATION
  Report Type: Spontaneous
  Country: US (occurrence: US)
  Receive Date: 20140207
  Receipt Date: 20140207
  Transmission Date: 20141002
  Serious: No
  Sender: FDA-Public Use
  Company Number: US-B.I. PHARMACEUTICALS,INC./RIDGEFIELD-2014-BI-04462BP

PATIENT
  Age: 76 Year
  Sex: Female
  Weight: 93 kg

DRUGS (1)
  1. AGGRENOX [Suspect]
     Indication: CEREBROVASCULAR ACCIDENT PROPHYLAXIS
     Dosage: STRENGTH: 25 MG / 200 MG; DAILY DOSE: 25MG/200 MG
     Route: 055
     Dates: start: 2006

REACTIONS (2)
  - Hyperparathyroidism [Not Recovered/Not Resolved]
  - Blood calcium increased [Not Recovered/Not Resolved]
